FAERS Safety Report 5135806-7 (Version None)
Quarter: 2006Q4

REPORT INFORMATION
  Report Type: 
  Country: None (occurrence: None)
  Receive Date: 20061024
  Receipt Date: 20061024
  Transmission Date: 20070319
  Serious: Yes (Hospitalization)
  Sender: FDA-Public Use
  Company Number: None

PATIENT
  Age: 74 Year
  Sex: Male

DRUGS (2)
  1. CIPRO IV [Suspect]
     Dosage: IV
     Route: 042
  2. VANCOMYCIN [Suspect]
     Dosage: IV
     Route: 042

REACTIONS (18)
  - ANTINEUTROPHIL CYTOPLASMIC ANTIBODY POSITIVE [None]
  - DIALYSIS [None]
  - DUODENAL ULCER [None]
  - GLOMERULONEPHRITIS [None]
  - HAEMODIALYSIS [None]
  - HAEMORRHAGE [None]
  - HYPERSENSITIVITY [None]
  - HYPERTENSION [None]
  - HYPOVOLAEMIA [None]
  - INFECTION [None]
  - PRURITUS [None]
  - RASH ERYTHEMATOUS [None]
  - RENAL FAILURE [None]
  - RENAL FAILURE ACUTE [None]
  - RENAL FAILURE CHRONIC [None]
  - RENAL TUBULAR NECROSIS [None]
  - UPPER GASTROINTESTINAL HAEMORRHAGE [None]
  - VASCULITIS [None]
